FAERS Safety Report 9519389 (Version 1)
Quarter: 2013Q1

REPORT INFORMATION
  Report Type: Spontaneous
  Country: US (occurrence: None)
  Receive Date: 20130305
  Receipt Date: 20130305
  Transmission Date: 20140127
  Serious: Yes (Hospitalization)
  Sender: FDA-Public Use
  Company Number: 163-21880-12010819

PATIENT
  Age: 83 Year
  Sex: Female
  Weight: 78.02 kg

DRUGS (3)
  1. REVLIMID [Suspect]
     Indication: PLASMA CELL MYELOMA
     Dosage: 10 MG, DAILY FOR 3 WEEKS ON 1 WEEK OFF, PO
     Route: 048
     Dates: start: 20110628
  2. PROCRIT [Concomitant]
  3. MVI (MVI) (UNKNOWN) [Concomitant]

REACTIONS (2)
  - Haemoglobin decreased [None]
  - Haematocrit decreased [None]
